FAERS Safety Report 26076376 (Version 1)
Quarter: 2025Q4

REPORT INFORMATION
  Report Type: Spontaneous
  Country: US (occurrence: US)
  Receive Date: 20251121
  Receipt Date: 20251121
  Transmission Date: 20260119
  Serious: No
  Sender: MILLICENT HOLDINGS
  Company Number: US-Millicent Holdings Ltd.-MILL20250324

PATIENT
  Age: 43 Year
  Sex: Female

DRUGS (2)
  1. FEMRING [Suspect]
     Active Substance: ESTRADIOL ACETATE
     Indication: Hormone replacement therapy
     Dosage: ONE RING EVERY THREE MONTHS (0.1 MG/DAY)
     Route: 067
     Dates: start: 20251019, end: 20251023
  2. FEMRING [Suspect]
     Active Substance: ESTRADIOL ACETATE
     Dosage: 1 RING EVERY 3 MONTHS (0.1 MG/DAY)
     Route: 067

REACTIONS (2)
  - Vulvovaginal pain [Not Recovered/Not Resolved]
  - Product colour issue [Unknown]

NARRATIVE: CASE EVENT DATE: 20251020
